FAERS Safety Report 10694947 (Version 1)
Quarter: 2015Q1

REPORT INFORMATION
  Report Type: Spontaneous
  Country: EG (occurrence: EG)
  Receive Date: 20150107
  Receipt Date: 20150107
  Transmission Date: 20150721
  Serious: Yes (Death)
  Sender: FDA-Public Use
  Company Number: EG-NOVOPROD-434301

PATIENT
  Sex: Male

DRUGS (3)
  1. MIXTARD 30 HM PENFILL [Suspect]
     Active Substance: INSULIN HUMAN
     Indication: GESTATIONAL DIABETES
     Dosage: 40 IU, QD (20 IU AFTER BREAKFAST AND 20 IU AFTER DINNER)
     Route: 064
     Dates: start: 201402, end: 20140702
  2. CALCIUM [Concomitant]
     Active Substance: CALCIUM
     Dosage: SINGLE
     Route: 064
     Dates: start: 20140101, end: 20140702
  3. FOLIC ACID. [Concomitant]
     Active Substance: FOLIC ACID
     Dosage: SINGLE
     Route: 064
     Dates: start: 20140101, end: 20140702

REACTIONS (2)
  - Premature baby [Fatal]
  - Foetal exposure during pregnancy [Recovered/Resolved]

NARRATIVE: CASE EVENT DATE: 201402
